FAERS Safety Report 9297456 (Version 1)
Quarter: 2013Q2

REPORT INFORMATION
  Report Type: Spontaneous
  Country: US (occurrence: None)
  Receive Date: 20130517
  Receipt Date: 20130517
  Transmission Date: 20140414
  Serious: Yes (Hospitalization)
  Sender: FDA-Public Use
  Company Number: None

PATIENT
  Sex: Male
  Weight: 21 kg

DRUGS (2)
  1. PEG-L-ASPARAGINASE (PEGASPARGASE, ONCOSPAR) [Suspect]
     Dosage: MEDICATION STOPPED DUE TO ALLERGIC REACTION
  2. METHOTREXATE [Suspect]

REACTIONS (6)
  - Respiratory distress [None]
  - Generalised erythema [None]
  - Cyanosis [None]
  - Lip swelling [None]
  - Hypotension [None]
  - Hypoxia [None]
